FAERS Safety Report 7902931-4 (Version None)
Quarter: 2011Q4

REPORT INFORMATION
  Report Type: 
  Country: None (occurrence: None)
  Receive Date: 20111109
  Receipt Date: 20111101
  Transmission Date: 20120403
  Serious: Yes (Other)
  Sender: FDA-Public Use
  Company Number: US-JNJFOC-20110903359

PATIENT
  Sex: Female
  Weight: 108.86 kg

DRUGS (3)
  1. DOXIL [Suspect]
     Indication: VAGINAL CANCER
     Route: 042
     Dates: start: 20100901
  2. DOXIL [Suspect]
     Indication: BLADDER CANCER
     Route: 042
     Dates: start: 20100901
  3. DOXIL [Suspect]
     Indication: ANGIOSARCOMA
     Route: 042
     Dates: start: 20100901

REACTIONS (4)
  - DRUG DOSE OMISSION [None]
  - HEADACHE [None]
  - OFF LABEL USE [None]
  - SKIN DISORDER [None]
